FAERS Safety Report 5736557-8 (Version None)
Quarter: 2008Q2

REPORT INFORMATION
  Report Type: 
  Country: None (occurrence: None)
  Receive Date: 20080508
  Receipt Date: 20080501
  Transmission Date: 20081010
  Serious: Yes (Other)
  Sender: FDA-Public Use
  Company Number: 2008011566

PATIENT
  Age: 17 Year
  Sex: Female
  Weight: 61.2356 kg

DRUGS (1)
  1. LISTERINE TOOTH DEFENSE (SODIUM FLUORIDE) [Suspect]
     Dosage: 10ML 1X (1 IN 1 D), ORAL
     Route: 048
     Dates: start: 20080430, end: 20080501

REACTIONS (2)
  - AGEUSIA [None]
  - APPLICATION SITE BURN [None]
